FAERS Safety Report 5460180-6 (Version None)
Quarter: 2007Q3

REPORT INFORMATION
  Report Type: 
  Country: None (occurrence: None)
  Receive Date: 20070919
  Receipt Date: 20070523
  Transmission Date: 20080115
  Serious: No
  Sender: FDA-Public Use
  Company Number: US-ASTRAZENECA-2007UW12803

PATIENT
  Age: 20 Year
  Sex: Male

DRUGS (3)
  1. SEROQUEL [Suspect]
     Indication: SLEEP DISORDER
     Route: 048
     Dates: start: 20070501
  2. SEROQUEL [Suspect]
     Route: 048
  3. SUBOXONE [Suspect]
     Dates: start: 20061101

REACTIONS (1)
  - DRUG SCREEN POSITIVE [None]
